FAERS Safety Report 10205902 (Version 1)
Quarter: 2014Q2

REPORT INFORMATION
  Report Type: Spontaneous
  Country: JP (occurrence: JP)
  Receive Date: 20140530
  Receipt Date: 20140530
  Transmission Date: 20141212
  Serious: Yes (Death)
  Sender: FDA-Public Use
  Company Number: JP-ROCHE-1408307

PATIENT
  Sex: Male

DRUGS (3)
  1. PEGASYS [Suspect]
     Indication: CHRONIC HEPATITIS C
     Route: 058
     Dates: start: 20140123, end: 20140501
  2. COPEGUS [Suspect]
     Indication: CHRONIC HEPATITIS C
     Dosage: DOSAGE UNCERTAIN
     Route: 048
     Dates: start: 20140123, end: 20140501
  3. SOVRIAD [Concomitant]
     Route: 065
     Dates: start: 20140123, end: 20140410

REACTIONS (2)
  - Spondylitis [Fatal]
  - Disseminated intravascular coagulation [Fatal]
